FAERS Safety Report 10411957 (Version 1)
Quarter: 2014Q2

REPORT INFORMATION
  Report Type: Spontaneous
  Country: US (occurrence: None)
  Receive Date: 20140514
  Receipt Date: 20140514
  Transmission Date: 20141212
  Serious: Yes (Hospitalization)
  Sender: FDA-Public Use
  Company Number: 103754

PATIENT
  Sex: Female

DRUGS (2)
  1. CIMZIA [Suspect]
     Indication: LIVER DISORDER
  2. CIMZIA [Suspect]

REACTIONS (3)
  - Intestinal resection [None]
  - Injection site pain [None]
  - Underdose [None]
